FAERS Safety Report 9180696 (Version 1)
Quarter: 2013Q1

REPORT INFORMATION
  Report Type: Spontaneous
  Country: NL (occurrence: None)
  Receive Date: 20130320
  Receipt Date: 20130320
  Transmission Date: 20140127
  Serious: Yes (Hospitalization)
  Sender: FDA-Public Use
  Company Number: NL-011170

PATIENT
  Age: 84 Year
  Sex: Male

DRUGS (4)
  1. DEGARELIX (FIRMAGON) [Suspect]
     Indication: PROSTATE CANCER
     Dosage: INJECTION TAKEN ONCE PER MONTH.
     Route: 058
     Dates: start: 20111008, end: 20111008
  2. BICALUTAMIDE [Concomitant]
  3. ROSUVASTATIN [Concomitant]
  4. METOPROLOL [Concomitant]

REACTIONS (1)
  - Myocardial infarction [None]
